FAERS Safety Report 7413131-9 (Version None)
Quarter: 2011Q2

REPORT INFORMATION
  Report Type: 
  Country: None (occurrence: None)
  Receive Date: 20110413
  Receipt Date: 20110410
  Transmission Date: 20111010
  Serious: Yes (Death)
  Sender: FDA-Public Use
  Company Number: AU-ABBOTT-11P-008-0714784-00

PATIENT
  Sex: Male

DRUGS (1)
  1. LUCRIN DEPOT [Suspect]
     Indication: PROSTATE CANCER
     Dosage: 4 MONTHLY
     Dates: start: 20100801

REACTIONS (5)
  - ILL-DEFINED DISORDER [None]
  - SQUAMOUS CELL CARCINOMA [None]
  - PULMONARY MASS [None]
  - METASTASES TO BONE [None]
  - PLEURAL EFFUSION [None]
